FAERS Safety Report 8981474 (Version 1)
Quarter: 2012Q4

REPORT INFORMATION
  Report Type: 
  Country: US (occurrence: US)
  Receive Date: 20121221
  Receipt Date: 20121221
  Transmission Date: 20130627
  Serious: Yes (Other)
  Sender: FDA-Public Use
  Company Number: US-BAYER-2012-127921

PATIENT
  Age: 24 Year
  Sex: Female

DRUGS (14)
  1. YAZ [Suspect]
     Indication: PREVENTION
  2. YAZ [Suspect]
     Indication: MENSES IRREGULAR
  3. YASMIN [Suspect]
  4. GIANVI [Suspect]
  5. TOPIRAMATE [Concomitant]
     Dosage: 100 mg, UNK
     Route: 048
     Dates: start: 20110805
  6. TERBINAFINE HYDROCHLORIDE [Concomitant]
     Dosage: 250 mg, UNK
     Route: 048
     Dates: start: 20111011
  7. CLEOCIN [Concomitant]
     Dosage: 150 mg, UNK
  8. BETA HC [Concomitant]
     Dosage: 60 ml, UNK
     Route: 061
  9. EPIDUO [Concomitant]
     Dosage: UNK, qhs
     Route: 061
  10. BENZACLIN [Concomitant]
     Dosage: UNK, qhs prn
  11. COSMETICS [Concomitant]
     Route: 061
  12. ANTICONVULSIVE [Concomitant]
  13. MOTRIN [Concomitant]
     Dosage: 800 mg, UNK
     Route: 048
  14. ACCUTANE [Concomitant]

REACTIONS (1)
  - Deep vein thrombosis [Recovered/Resolved]
